FAERS Safety Report 26085048 (Version 2)
Quarter: 2025Q4

REPORT INFORMATION
  Report Type: Spontaneous
  Country: JP (occurrence: JP)
  Receive Date: 20251125
  Receipt Date: 20251214
  Transmission Date: 20260118
  Serious: Yes (Death, Hospitalization)
  Sender: MERCK SHARP & DOHME LLC
  Company Number: JP-009507513-2351966

PATIENT
  Sex: Male

DRUGS (2)
  1. KEYTRUDA [Suspect]
     Active Substance: PEMBROLIZUMAB
     Indication: Renal cell carcinoma
     Dosage: ADMINISTERED SEVERAL TIMES
     Route: 041
     Dates: start: 202510, end: 202511
  2. LENVIMA [Suspect]
     Active Substance: LENVATINIB
     Indication: Renal cell carcinoma
     Dosage: STRENGTH: 10 MG
     Route: 048
     Dates: start: 202510, end: 202511

REACTIONS (3)
  - Malignant neoplasm progression [Fatal]
  - Dyspnoea [Recovering/Resolving]
  - Drug ineffective [Fatal]

NARRATIVE: CASE EVENT DATE: 20251101
